FAERS Safety Report 10172082 (Version 1)
Quarter: 2014Q2

REPORT INFORMATION
  Report Type: Report from Study
  Country: US (occurrence: US)
  Receive Date: 20140515
  Receipt Date: 20140515
  Transmission Date: 20141212
  Serious: Yes (Other)
  Sender: FDA-Public Use
  Company Number: PHEH2014US009748

PATIENT
  Sex: Female

DRUGS (2)
  1. ILARIS [Suspect]
     Indication: CRYOPYRIN ASSOCIATED PERIODIC SYNDROME
     Dosage: 1 DF, EVERY 8 WEEKS
     Dates: start: 20121201
  2. ILARIS [Suspect]
     Indication: MUCKLE-WELLS SYNDROME

REACTIONS (3)
  - Immune system disorder [Unknown]
  - Urticaria [Unknown]
  - Arthralgia [Unknown]
